FAERS Safety Report 22056858 (Version 1)
Quarter: 2023Q1

REPORT INFORMATION
  Report Type: Spontaneous
  Country: DE (occurrence: DE)
  Receive Date: 20230303
  Receipt Date: 20230303
  Transmission Date: 20230418
  Serious: Yes (Other)
  Sender: FDA-Public Use
  Company Number: DE-AUROBINDO-AUR-APL-2023-009037

PATIENT
  Age: 33 Year
  Sex: Female

DRUGS (30)
  1. CLOZAPINE [Suspect]
     Active Substance: CLOZAPINE
     Indication: Tardive dyskinesia
     Dosage: UNK
     Route: 065
  2. OLANZAPINE [Suspect]
     Active Substance: OLANZAPINE
     Indication: Tardive dyskinesia
     Dosage: UNK
     Route: 065
  3. OLANZAPINE [Suspect]
     Active Substance: OLANZAPINE
     Indication: Dystonia
  4. RISPERIDONE [Suspect]
     Active Substance: RISPERIDONE
     Indication: Tardive dyskinesia
     Dosage: UNK
     Route: 065
  5. RISPERIDONE [Suspect]
     Active Substance: RISPERIDONE
     Indication: Dystonia
  6. BACLOFEN [Suspect]
     Active Substance: BACLOFEN
     Indication: Tardive dyskinesia
     Dosage: UNK
     Route: 065
  7. BACLOFEN [Suspect]
     Active Substance: BACLOFEN
     Indication: Dystonia
  8. BUSPIRONE [Suspect]
     Active Substance: BUSPIRONE HYDROCHLORIDE
     Indication: Dystonia
     Dosage: UNK
     Route: 065
  9. BOTULINUM TOXIN NOS [Suspect]
     Active Substance: BOTULINUM TOXIN NOS
     Indication: Dystonia
     Dosage: UNK
     Route: 065
  10. BOTULINUM TOXIN NOS [Suspect]
     Active Substance: BOTULINUM TOXIN NOS
     Indication: Tardive dyskinesia
  11. CLONAZEPAM [Suspect]
     Active Substance: CLONAZEPAM
     Indication: Tardive dyskinesia
     Dosage: UNK
     Route: 065
  12. CLONAZEPAM [Suspect]
     Active Substance: CLONAZEPAM
     Indication: Dystonia
  13. CLOBAZAM [Suspect]
     Active Substance: CLOBAZAM
     Indication: Tardive dyskinesia
     Dosage: UNK
     Route: 065
  14. CLOBAZAM [Suspect]
     Active Substance: CLOBAZAM
     Indication: Dystonia
  15. DANTROLENE [Suspect]
     Active Substance: DANTROLENE
     Indication: Dystonia
     Dosage: UNK
     Route: 065
  16. DANTROLENE [Suspect]
     Active Substance: DANTROLENE
     Indication: Tardive dyskinesia
  17. PIPAMPERONE [Suspect]
     Active Substance: PIPAMPERONE
     Indication: Dystonia
     Dosage: UNK
     Route: 065
  18. PIPAMPERONE [Suspect]
     Active Substance: PIPAMPERONE
     Indication: Tardive dyskinesia
  19. OXAZEPAM [Suspect]
     Active Substance: OXAZEPAM
     Indication: Dystonia
     Dosage: UNK
     Route: 065
  20. OXAZEPAM [Suspect]
     Active Substance: OXAZEPAM
     Indication: Tardive dyskinesia
  21. TETRABENAZINE [Suspect]
     Active Substance: TETRABENAZINE
     Indication: Dystonia
     Dosage: UNK
     Route: 065
  22. TETRABENAZINE [Suspect]
     Active Substance: TETRABENAZINE
     Indication: Tardive dyskinesia
  23. TIZANIDINE [Suspect]
     Active Substance: TIZANIDINE
     Indication: Dystonia
     Dosage: UNK
     Route: 065
  24. TIZANIDINE [Suspect]
     Active Substance: TIZANIDINE
     Indication: Tardive dyskinesia
  25. FLUOXETINE [Concomitant]
     Active Substance: FLUOXETINE HYDROCHLORIDE
     Indication: Antidepressant therapy
     Dosage: UNK
     Route: 065
  26. FLUOXETINE [Concomitant]
     Active Substance: FLUOXETINE HYDROCHLORIDE
     Indication: Depression
  27. MIRTAZAPINE [Concomitant]
     Active Substance: MIRTAZAPINE
     Indication: Antidepressant therapy
     Dosage: UNK
     Route: 065
  28. MIRTAZAPINE [Concomitant]
     Active Substance: MIRTAZAPINE
     Indication: Depression
  29. TRIMIPRAMINE [Concomitant]
     Active Substance: TRIMIPRAMINE
     Indication: Antidepressant therapy
     Dosage: UNK
     Route: 065
  30. TRIMIPRAMINE [Concomitant]
     Active Substance: TRIMIPRAMINE
     Indication: Depression

REACTIONS (1)
  - Drug ineffective [Unknown]
